FAERS Safety Report 13288387 (Version 2)
Quarter: 2017Q2

REPORT INFORMATION
  Report Type: Report from Study
  Country: None (occurrence: US)
  Receive Date: 20170302
  Receipt Date: 20170414
  Transmission Date: 20170830
  Serious: Yes (Hospitalization, Other)
  Sender: FDA-Public Use
  Company Number: US-ABBVIE-17K-163-1888446-00

PATIENT
  Age: 53 Year
  Sex: Male

DRUGS (2)
  1. HUMIRA [Suspect]
     Active Substance: ADALIMUMAB
     Indication: COLITIS ULCERATIVE
     Route: 058
     Dates: start: 201212
  2. TESTOSTERONE. [Concomitant]
     Active Substance: TESTOSTERONE
     Indication: PRODUCT USED FOR UNKNOWN INDICATION

REACTIONS (19)
  - Benign neoplasm of thyroid gland [Unknown]
  - Transurethral prostatectomy [Recovered/Resolved]
  - Adverse drug reaction [Recovered/Resolved]
  - Urinary tract infection [Recovered/Resolved]
  - Coma [Recovered/Resolved]
  - Urosepsis [Unknown]
  - Osteoarthritis [Not Recovered/Not Resolved]
  - Limb injury [Unknown]
  - Peroneal nerve palsy [Unknown]
  - Fall [Unknown]
  - Apparent death [Recovered/Resolved]
  - Nerve root compression [Recovered/Resolved]
  - Intervertebral disc protrusion [Recovered/Resolved]
  - Rheumatoid arthritis [Unknown]
  - Cartilage atrophy [Not Recovered/Not Resolved]
  - Volvulus [Unknown]
  - Back pain [Recovered/Resolved]
  - Neuropathy peripheral [Unknown]
  - IgA nephropathy [Unknown]

NARRATIVE: CASE EVENT DATE: 201301
